FAERS Safety Report 7076904-0 (Version None)
Quarter: 2010Q4

REPORT INFORMATION
  Report Type: 
  Country: None (occurrence: None)
  Receive Date: 20101101
  Receipt Date: 20101020
  Transmission Date: 20110411
  Serious: Yes (Death, Life-Threatening)
  Sender: FDA-Public Use
  Company Number: IL-NOVOPROD-316907

PATIENT
  Sex: Male

DRUGS (1)
  1. NOVOSEVEN [Suspect]
     Indication: HAEMORRHAGE
     Dosage: 7.2 MG, UNK
     Route: 042
     Dates: start: 20100921

REACTIONS (2)
  - BRAIN INJURY [None]
  - CONDITION AGGRAVATED [None]
